FAERS Safety Report 16830866 (Version 2)
Quarter: 2020Q3

REPORT INFORMATION
  Report Type: Spontaneous
  Country: GB (occurrence: GB)
  Receive Date: 20190920
  Receipt Date: 20200930
  Transmission Date: 20201102
  Serious: Yes (Hospitalization)
  Sender: FDA-Public Use
  Company Number: GB-ACCORD-155030

PATIENT
  Age: 75 Year
  Sex: Female

DRUGS (25)
  1. TRASTUZUMAB. [Suspect]
     Active Substance: TRASTUZUMAB
     Indication: HER2 POSITIVE BREAST CANCER
     Dosage: THERAPY END DATE? 30?JAN?2018, 600 MG, 3/WEEK
     Route: 058
     Dates: start: 20161013
  2. GABAPENTIN. [Concomitant]
     Active Substance: GABAPENTIN
     Indication: PRODUCT USED FOR UNKNOWN INDICATION
     Dosage: 900 MG, DAILY
     Route: 048
     Dates: start: 20160913
  3. LEVOTHYROXINE. [Concomitant]
     Active Substance: LEVOTHYROXINE
     Indication: PRODUCT USED FOR UNKNOWN INDICATION
     Dosage: 175 MG, DAILY
     Route: 048
     Dates: start: 20030924
  4. EXEMESTANE. [Suspect]
     Active Substance: EXEMESTANE
     Indication: HER2 POSITIVE BREAST CANCER
     Dosage: 25 MG, DAILY
     Route: 048
     Dates: start: 20161122
  5. PACLITAXEL/PACLITAXEL LIPOSOME [Suspect]
     Active Substance: PACLITAXEL
     Indication: HER2 POSITIVE BREAST CANCER
     Dosage: THERAPY END DATE? 25?OCT?2018, 162 MG, UNK
     Route: 042
     Dates: start: 20180921
  6. MORPHINE [Concomitant]
     Active Substance: MORPHINE
     Dosage: 30 MG, DAILY
     Route: 048
     Dates: start: 20181102
  7. LEVOMEPROMAZINE [Concomitant]
     Active Substance: LEVOMEPROMAZINE
     Indication: VOMITING
     Route: 048
     Dates: start: 20181029, end: 20181030
  8. MACROGOL/MACROGOL STEARATE [Concomitant]
     Active Substance: POLYETHYLENE GLYCOLS
     Indication: PRODUCT USED FOR UNKNOWN INDICATION
     Dosage: 2 DF, DAILY
     Route: 048
     Dates: start: 20160913
  9. NAPROXEN. [Concomitant]
     Active Substance: NAPROXEN
     Indication: PRODUCT USED FOR UNKNOWN INDICATION
     Dosage: 500 MG, DAILY
     Route: 048
     Dates: start: 20160902
  10. HALOPERIDOL. [Concomitant]
     Active Substance: HALOPERIDOL
     Indication: SPINAL PAIN
     Dosage: 3 MG, DAILY
     Route: 048
     Dates: start: 20181102, end: 20181108
  11. ZOLEDRONIC ACID [Concomitant]
     Active Substance: ZOLEDRONIC ACID
     Indication: METASTASES TO BONE
     Dosage: 3.5 MG, MONTHLY
     Route: 042
     Dates: start: 20160920
  12. TRASTUZUMAB. [Suspect]
     Active Substance: TRASTUZUMAB
     Indication: HER2 POSITIVE BREAST CANCER
     Dosage: THERAPY END DATE? 30?JAN?2018, 600 MG, 3/WEEK
     Route: 058
     Dates: start: 20180718
  13. DEXAMETHASONE. [Concomitant]
     Active Substance: DEXAMETHASONE
     Indication: SPINAL PAIN
     Dosage: 4 UNK, DAILY
     Route: 048
     Dates: start: 20181102, end: 20181201
  14. LANSOPRAZOLE. [Concomitant]
     Active Substance: LANSOPRAZOLE
     Indication: PROPHYLAXIS
     Dosage: 30 MG, DAILY
     Route: 048
     Dates: start: 20181106
  15. PACLITAXEL/PACLITAXEL LIPOSOME [Suspect]
     Active Substance: PACLITAXEL
     Indication: HER2 POSITIVE BREAST CANCER
     Dosage: 120 MG, UNK
     Route: 042
     Dates: start: 20181108, end: 20190228
  16. CAPECITABINE. [Suspect]
     Active Substance: CAPECITABINE
     Indication: HER2 POSITIVE BREAST CANCER
     Dosage: 500 MG, UNK
     Route: 048
     Dates: start: 20180202, end: 20180708
  17. NERATINIB [Suspect]
     Active Substance: NERATINIB
     Indication: HER2 POSITIVE BREAST CANCER
     Dosage: 240 MG DAILY
     Route: 048
     Dates: start: 20190226, end: 20190227
  18. CALCICHEW?D3 FORTE [Concomitant]
     Active Substance: CALCIUM\CHOLECALCIFEROL
     Indication: PRODUCT USED FOR UNKNOWN INDICATION
     Dosage: 2 DF, DAILY
     Route: 048
     Dates: start: 20160917
  19. DOMPERIDONE [Concomitant]
     Active Substance: DOMPERIDONE
     Indication: NAUSEA
     Dosage: UNK
     Route: 048
     Dates: start: 20181108
  20. GLYCEROL [Concomitant]
     Active Substance: GLYCERIN
     Indication: CONSTIPATION
     Dosage: UNK
     Route: 054
     Dates: start: 20181029, end: 20181030
  21. OMEPRAZOLE. [Concomitant]
     Active Substance: OMEPRAZOLE
     Indication: PROPHYLAXIS
     Dosage: 40 MG, DAILY
     Route: 048
     Dates: start: 20160902
  22. PARACETAMOL [Concomitant]
     Active Substance: ACETAMINOPHEN
     Indication: PRODUCT USED FOR UNKNOWN INDICATION
     Dosage: 4 G, DAILY
     Route: 048
     Dates: start: 20160913
  23. MORPHINE [Concomitant]
     Active Substance: MORPHINE
     Indication: SPINAL PAIN
     Dosage: 5 MG, PRN
     Route: 048
     Dates: start: 20160913
  24. DOCUSATE [Concomitant]
     Active Substance: DOCUSATE
     Indication: CONSTIPATION
     Dosage: 400 MG, DAILY
     Route: 048
     Dates: start: 20181102
  25. CAPECITABINE. [Suspect]
     Active Substance: CAPECITABINE
     Indication: HER2 POSITIVE BREAST CANCER
     Dosage: 500 MG, UNK
     Route: 048
     Dates: start: 20180227, end: 20180731

REACTIONS (5)
  - Diarrhoea [Recovered/Resolved]
  - Nausea [Not Recovered/Not Resolved]
  - Decreased appetite [Not Recovered/Not Resolved]
  - Blood phosphorus decreased [Recovered/Resolved]
  - Vomiting [Recovered/Resolved]

NARRATIVE: CASE EVENT DATE: 201810
